FAERS Safety Report 9508166 (Version 1)
Quarter: 2013Q3

REPORT INFORMATION
  Report Type: Spontaneous
  Country: US (occurrence: US)
  Receive Date: 20130909
  Receipt Date: 20130909
  Transmission Date: 20140515
  Serious: No
  Sender: FDA-Public Use
  Company Number: US-PFIZER INC-2013254541

PATIENT
  Age: 88 Year
  Sex: Female
  Weight: 58.96 kg

DRUGS (3)
  1. ZMAX [Suspect]
     Dosage: 2 G, SINGLE
     Dates: start: 20130723, end: 20130723
  2. AMLODIPINE BESILATE [Concomitant]
     Indication: HYPERTENSION
     Dosage: 5 MG DAILY
  3. METFORMIN [Concomitant]
     Indication: DIABETES MELLITUS
     Dosage: 500 MG, 2X/DAY

REACTIONS (2)
  - Blood urine present [Unknown]
  - Diarrhoea [Recovered/Resolved]
